FAERS Safety Report 9722893 (Version 2)
Quarter: 2013Q4

REPORT INFORMATION
  Report Type: Spontaneous
  Country: NL (occurrence: NL)
  Receive Date: 20131202
  Receipt Date: 20131202
  Transmission Date: 20140711
  Serious: Yes (Life-Threatening, Hospitalization)
  Sender: FDA-Public Use
  Company Number: NL-NOVOPROD-392537

PATIENT
  Age: 78 Year
  Sex: Female
  Weight: 85 kg

DRUGS (2)
  1. NOVOMIX 30 FLEXPEN [Suspect]
     Indication: TYPE 2 DIABETES MELLITUS
     Dosage: UNKNOWN
     Route: 065
  2. NOVOMIX 30 FLEXPEN [Suspect]
     Dosage: UNKNOWN
     Route: 065
     Dates: end: 20130925

REACTIONS (3)
  - Dyspnoea [Unknown]
  - Hypoglycaemia [Recovered/Resolved with Sequelae]
  - Hypoglycaemia [Recovered/Resolved with Sequelae]
